FAERS Safety Report 11748631 (Version 1)
Quarter: 2015Q4

REPORT INFORMATION
  Report Type: Other
  Country: IT (occurrence: IT)
  Receive Date: 20151117
  Receipt Date: 20151117
  Transmission Date: 20160304
  Serious: Yes (Hospitalization)
  Sender: FDA-Public Use
  Company Number: IT-MYLANLABS-2015M1039035

PATIENT

DRUGS (3)
  1. PERINDOPRIL E INDAPAMIDE MYLAN 2.5 MG/0.625 MG [Suspect]
     Active Substance: INDAPAMIDE\PERINDOPRIL
     Indication: HYPERTENSION
     Dosage: 5 DF, TOTAL
     Route: 048
     Dates: start: 20151009
  2. LISINOPRIL IDROCLOROTIAZIDE MYLAN GENERICS [Suspect]
     Active Substance: HYDROCHLOROTHIAZIDE\LISINOPRIL
     Indication: HYPERTENSION
     Dosage: 10 DF, TOTAL
     Route: 048
     Dates: start: 20140101
  3. LISINOPRIL IDROCLOROTIAZIDE MYLAN GENERICS [Suspect]
     Active Substance: HYDROCHLOROTHIAZIDE\LISINOPRIL
     Dosage: 1 DF, QD
     Route: 048

REACTIONS (7)
  - Drug abuse [Unknown]
  - Overdose [Unknown]
  - Vomiting [Recovered/Resolved]
  - Blood lactic acid increased [Unknown]
  - Hypotension [Recovered/Resolved]
  - Intentional overdose [None]
  - Wrong drug administered [Unknown]

NARRATIVE: CASE EVENT DATE: 20151009
